FAERS Safety Report 23386952 (Version 3)
Quarter: 2024Q1

REPORT INFORMATION
  Report Type: Report from Study
  Country: CA (occurrence: CA)
  Receive Date: 20240110
  Receipt Date: 20240124
  Transmission Date: 20240410
  Serious: Yes (Hospitalization, Other)
  Sender: FDA-Public Use
  Company Number: CA-002147023-NVSC2023CA022264

PATIENT
  Sex: Male

DRUGS (1)
  1. HYRIMOZ [Suspect]
     Active Substance: ADALIMUMAB-ADAZ
     Indication: Ankylosing spondylitis
     Dosage: 40 MG
     Route: 058
     Dates: start: 20220501

REACTIONS (6)
  - Cardiovascular insufficiency [Unknown]
  - Accident [Unknown]
  - General physical health deterioration [Unknown]
  - Weight decreased [Unknown]
  - Product use complaint [Unknown]
  - Feeling abnormal [Unknown]
